FAERS Safety Report 9180874 (Version 2)
Quarter: 2013Q2

REPORT INFORMATION
  Report Type: Spontaneous
  Country: US (occurrence: US)
  Receive Date: 20130322
  Receipt Date: 20130522
  Transmission Date: 20140414
  Serious: Yes (Hospitalization)
  Sender: FDA-Public Use
  Company Number: US-BAYER-2013-034201

PATIENT
  Age: 26 Year
  Sex: Female
  Weight: 96 kg

DRUGS (1)
  1. MIRENA [Suspect]
     Indication: CONTRACEPTION
     Dosage: 20 MCG/24HR, CONT
     Route: 015
     Dates: end: 20121027

REACTIONS (6)
  - Ruptured ectopic pregnancy [None]
  - Ectopic pregnancy with intrauterine device [Recovered/Resolved]
  - Drug ineffective [None]
  - Menstruation delayed [None]
  - Pelvic fluid collection [None]
  - Adnexa uteri mass [None]
